FAERS Safety Report 9225987 (Version 3)
Quarter: 2013Q2

REPORT INFORMATION
  Report Type: Spontaneous
  Country: US (occurrence: US)
  Receive Date: 20130411
  Receipt Date: 20130520
  Transmission Date: 20140414
  Serious: Yes (Other)
  Sender: FDA-Public Use
  Company Number: US-JNJFOC-20130400058

PATIENT
  Sex: Male
  Weight: 58.97 kg

DRUGS (2)
  1. RAZADYNE ER [Suspect]
     Indication: DEMENTIA
     Route: 048
     Dates: start: 201212, end: 201303
  2. GALANTAMINE [Suspect]
     Indication: PRODUCT USED FOR UNKNOWN INDICATION
     Route: 065

REACTIONS (4)
  - Drug dispensing error [Unknown]
  - Product substitution issue [Unknown]
  - No adverse event [Unknown]
  - Memory impairment [Recovered/Resolved]
